FAERS Safety Report 24070766 (Version 1)
Quarter: 2024Q3

REPORT INFORMATION
  Report Type: Report from Study
  Country: IT (occurrence: IT)
  Receive Date: 20240710
  Receipt Date: 20240710
  Transmission Date: 20241016
  Serious: No
  Sender: ROCHE
  Company Number: IT-ROCHE-3147151

PATIENT
  Age: 61 Year
  Sex: Male
  Weight: 67.0 kg

DRUGS (12)
  1. ALECTINIB [Suspect]
     Active Substance: ALECTINIB
     Indication: Non-small cell lung cancer metastatic
     Route: 048
     Dates: start: 20220113
  2. SOLU-MEDROL [Concomitant]
     Active Substance: METHYLPREDNISOLONE SODIUM SUCCINATE
     Route: 030
     Dates: start: 20220822, end: 20220901
  3. CRESTOR [Concomitant]
     Active Substance: ROSUVASTATIN CALCIUM
     Indication: Hypercholesterolaemia
     Route: 048
  4. PANTOPRAZOLE SODIUM [Concomitant]
     Active Substance: PANTOPRAZOLE SODIUM
     Route: 048
  5. NADROPARIN CALCIUM [Concomitant]
     Active Substance: NADROPARIN CALCIUM
     Route: 030
  6. ADEMETIONINE [Concomitant]
     Active Substance: ADEMETIONINE
     Indication: Depression
     Route: 048
     Dates: start: 20220706
  7. XGEVA [Concomitant]
     Active Substance: DENOSUMAB
     Route: 030
     Dates: start: 20220620, end: 20220620
  8. XGEVA [Concomitant]
     Active Substance: DENOSUMAB
     Route: 030
     Dates: start: 20220808, end: 20220808
  9. LASIX [Concomitant]
     Active Substance: FUROSEMIDE
     Route: 048
  10. LORLATINIB [Concomitant]
     Active Substance: LORLATINIB
     Dates: start: 20221104, end: 20230130
  11. DEXAMETHASONE SODIUM PHOSPHATE [Concomitant]
     Active Substance: DEXAMETHASONE PHOSPHATE\DEXAMETHASONE SODIUM PHOSPHATE
     Route: 048
     Dates: start: 20220901
  12. ABBA (ITALY) [Concomitant]
     Route: 048
     Dates: start: 20220822, end: 20220901

REACTIONS (1)
  - Calcium deficiency [Recovered/Resolved]

NARRATIVE: CASE EVENT DATE: 20220714
